FAERS Safety Report 9358986 (Version 1)
Quarter: 2013Q2

REPORT INFORMATION
  Report Type: Spontaneous
  Country: GB (occurrence: GB)
  Receive Date: 20130620
  Receipt Date: 20130620
  Transmission Date: 20140414
  Serious: Yes (Life-Threatening, Hospitalization)
  Sender: FDA-Public Use
  Company Number: GB-ASTRAZENECA-2013SE46690

PATIENT
  Age: 70 Year
  Sex: Male
  Weight: 100 kg

DRUGS (5)
  1. TICAGRELOR [Suspect]
     Indication: ACUTE CORONARY SYNDROME
     Route: 048
     Dates: start: 20130511, end: 20130531
  2. TICAGRELOR [Suspect]
     Indication: ANTIPLATELET THERAPY
     Route: 048
     Dates: start: 20130511, end: 20130531
  3. ASPIRIN [Concomitant]
  4. ENOXAPARIN [Concomitant]
     Indication: ACUTE CORONARY SYNDROME
  5. ENOXAPARIN [Concomitant]
     Indication: ACUTE CORONARY SYNDROME

REACTIONS (3)
  - Pneumonia aspiration [Unknown]
  - Pneumonia staphylococcal [Unknown]
  - Haemorrhage [Unknown]
